FAERS Safety Report 14250945 (Version 1)
Quarter: 2017Q4

REPORT INFORMATION
  Report Type: Spontaneous
  Country: US (occurrence: US)
  Receive Date: 20171205
  Receipt Date: 20171205
  Transmission Date: 20180321
  Serious: Yes (Other)
  Sender: FDA-Public Use
  Company Number: None

PATIENT
  Age: 35 Year
  Sex: Female
  Weight: 127.8 kg

DRUGS (1)
  1. NEXPLANON [Suspect]
     Active Substance: ETONOGESTREL
     Indication: MENSTRUAL DISORDER
     Dosage: OTHER STRENGTH:NA;QUANTITY:1 IMPLANT;OTHER FREQUENCY:IMPLANT;?
     Route: 058
     Dates: start: 20150803, end: 20171101

REACTIONS (5)
  - Bladder pain [None]
  - Urinary tract infection [None]
  - Diverticulitis [None]
  - Blood urine present [None]
  - Weight increased [None]

NARRATIVE: CASE EVENT DATE: 20170831
